FAERS Safety Report 10279813 (Version 1)
Quarter: 2014Q3

REPORT INFORMATION
  Report Type: Spontaneous
  Country: IR (occurrence: IR)
  Receive Date: 20140707
  Receipt Date: 20140707
  Transmission Date: 20150326
  Serious: Yes (Death, Other)
  Sender: FDA-Public Use
  Company Number: IR-SA-2014SA087565

PATIENT
  Age: 53 Year
  Sex: Female

DRUGS (1)
  1. THYMOGLOBULINE [Suspect]
     Active Substance: LAPINE T-LYMPHOCYTE IMMUNE GLOBULIN
     Indication: RENAL TRANSPLANT
     Route: 065

REACTIONS (7)
  - Haematuria [Unknown]
  - Haemorrhage [Fatal]
  - Thrombocytopenia [Unknown]
  - Leukopenia [Unknown]
  - Pain in extremity [Unknown]
  - Arthralgia [Unknown]
  - Haemoglobin decreased [Unknown]

NARRATIVE: CASE EVENT DATE: 20140531
